FAERS Safety Report 6196232-5 (Version None)
Quarter: 2009Q2

REPORT INFORMATION
  Report Type: 
  Country: None (occurrence: None)
  Receive Date: 20090520
  Receipt Date: 20090512
  Transmission Date: 20091009
  Serious: Yes (Hospitalization, Disabling, Other)
  Sender: FDA-Public Use
  Company Number: PHEH2008US09584

PATIENT
  Sex: Female
  Weight: 59 kg

DRUGS (5)
  1. DESFERAL [Suspect]
     Indication: THALASSAEMIA
     Dosage: 4 GM FIVE DAYS PER WEEK
     Route: 058
     Dates: start: 20030711
  2. VITAMINS [Concomitant]
     Dosage: 1 DAILY
     Route: 048
  3. FOLIC ACID [Concomitant]
     Dosage: 1 MG, QD
     Route: 048
  4. LEVOTHYROXINE SODIUM [Concomitant]
     Dosage: 0.75 MCG DAILY
     Route: 048
  5. PREMARIN [Concomitant]
     Dosage: 0.625 MG, QD
     Route: 048

REACTIONS (1)
  - B-CELL LYMPHOMA [None]
